FAERS Safety Report 9526376 (Version 1)
Quarter: 2013Q3

REPORT INFORMATION
  Report Type: Spontaneous
  Country: PE (occurrence: PE)
  Receive Date: 20130916
  Receipt Date: 20130916
  Transmission Date: 20140515
  Serious: Yes (Death, Other)
  Sender: FDA-Public Use
  Company Number: PE-INCYTE CORPORATION-2013IN002019

PATIENT
  Age: 86 Year
  Sex: Male

DRUGS (1)
  1. JAKAVI [Suspect]
     Indication: MYELOFIBROSIS
     Route: 065

REACTIONS (2)
  - Disease progression [Fatal]
  - Bone marrow disorder [Unknown]
